FAERS Safety Report 21148237 (Version 1)
Quarter: 2022Q3

REPORT INFORMATION
  Report Type: Spontaneous
  Country: CN (occurrence: CN)
  Receive Date: 20220729
  Receipt Date: 20220729
  Transmission Date: 20221026
  Serious: Yes (Other)
  Sender: FDA-Public Use
  Company Number: CN-009507513-2207CHN007762

PATIENT
  Sex: Male

DRUGS (3)
  1. PEMBROLIZUMAB [Suspect]
     Active Substance: PEMBROLIZUMAB
     Indication: Oesophageal squamous cell carcinoma
     Dosage: 200 MILLIGRAM, EVERY 3 WEEKS
     Route: 042
  2. PACLITAXEL [Suspect]
     Active Substance: PACLITAXEL
     Indication: Oesophageal squamous cell carcinoma
     Dosage: 260 MILLIGRAM/SQ. METER, EVERY 3 WEEKS
     Route: 042
  3. CISPLATIN [Suspect]
     Active Substance: CISPLATIN
     Indication: Oesophageal squamous cell carcinoma
     Dosage: 75 MILLIGRAM/SQ. METER, EVERY 3 WEEKS
     Route: 042

REACTIONS (2)
  - Leukopenia [Unknown]
  - Product use issue [Unknown]
